FAERS Safety Report 4296596-3 (Version None)
Quarter: 2004Q1

REPORT INFORMATION
  Report Type: 
  Country: None (occurrence: None)
  Receive Date: 20040217
  Receipt Date: 20040204
  Transmission Date: 20041129
  Serious: Yes (Hospitalization, Other)
  Sender: FDA-Public Use
  Company Number: GB-GLAXOSMITHKLINE-B0322542A

PATIENT
  Age: 24 Year
  Sex: Female

DRUGS (2)
  1. LAMOTRIGINE [Suspect]
     Indication: EPILEPSY
     Dosage: 50MG UNKNOWN
     Route: 065
     Dates: start: 20031225
  2. CARBAMAZEPINE [Suspect]
     Indication: EPILEPSY
     Dosage: 1400MG PER DAY
     Route: 065
     Dates: start: 19980101

REACTIONS (3)
  - BLOOD DISORDER [None]
  - LIVER DISORDER [None]
  - STEVENS-JOHNSON SYNDROME [None]
